FAERS Safety Report 21225082 (Version 1)
Quarter: 2022Q3

REPORT INFORMATION
  Report Type: Spontaneous
  Country: US (occurrence: US)
  Receive Date: 20220817
  Receipt Date: 20220817
  Transmission Date: 20221027
  Serious: No
  Sender: FDA-Public Use
  Company Number: ES-MABO-2022006236

PATIENT
  Age: 73 Year
  Sex: Male

DRUGS (10)
  1. ARIPIPRAZOLE [Suspect]
     Active Substance: ARIPIPRAZOLE
     Indication: Impulsive behaviour
     Dosage: UNK
     Route: 065
  2. ARIPIPRAZOLE [Suspect]
     Active Substance: ARIPIPRAZOLE
     Indication: Intentional self-injury
  3. BUSPIRONE [Concomitant]
     Active Substance: BUSPIRONE HYDROCHLORIDE
     Indication: Impulsive behaviour
     Dosage: UNK
     Route: 065
  4. BUSPIRONE [Concomitant]
     Active Substance: BUSPIRONE HYDROCHLORIDE
     Indication: Intentional self-injury
  5. HALOPERIDOL [Concomitant]
     Active Substance: HALOPERIDOL
     Indication: Impulsive behaviour
     Dosage: UNK
     Route: 065
  6. HALOPERIDOL [Concomitant]
     Active Substance: HALOPERIDOL
     Indication: Intentional self-injury
  7. LORAZEPAM [Concomitant]
     Active Substance: LORAZEPAM
     Indication: Impulsive behaviour
     Dosage: UNK
     Route: 065
  8. LORAZEPAM [Concomitant]
     Active Substance: LORAZEPAM
     Indication: Intentional self-injury
  9. QUETIAPINE [Concomitant]
     Active Substance: QUETIAPINE
     Indication: Impulsive behaviour
     Dosage: UNK
     Route: 065
  10. QUETIAPINE [Concomitant]
     Active Substance: QUETIAPINE
     Indication: Intentional self-injury

REACTIONS (1)
  - Product use in unapproved indication [Unknown]
